FAERS Safety Report 14661816 (Version 6)
Quarter: 2019Q2

REPORT INFORMATION
  Report Type: Spontaneous
  Country: US (occurrence: US)
  Receive Date: 20180320
  Receipt Date: 20190527
  Transmission Date: 20190711
  Serious: Yes (Hospitalization, Other)
  Sender: FDA-Public Use
  Company Number: US-INCYTE CORPORATION-2018IN002543

PATIENT

DRUGS (12)
  1. TYLENOL [Concomitant]
     Active Substance: ACETAMINOPHEN
     Indication: PRODUCT USED FOR UNKNOWN INDICATION
     Dosage: UNK
     Route: 065
  2. JAKAFI [Suspect]
     Active Substance: RUXOLITINIB
     Dosage: 20MG 1 TAB IN AM 10MG 1 TAB IN THE EVENINGS
     Route: 048
     Dates: start: 20181228
  3. JAKAFI [Suspect]
     Active Substance: RUXOLITINIB
     Indication: MYELOFIBROSIS
     Dosage: 10 MG, BID
     Route: 048
     Dates: start: 20170519, end: 20180315
  4. JAKAFI [Suspect]
     Active Substance: RUXOLITINIB
     Dosage: 10 MG QAM/20 MG QPM
     Route: 048
     Dates: start: 20181228
  5. DULOXETINE. [Concomitant]
     Active Substance: DULOXETINE
     Indication: PRODUCT USED FOR UNKNOWN INDICATION
     Dosage: UNK
     Route: 065
  6. JAKAFI [Suspect]
     Active Substance: RUXOLITINIB
     Dosage: 20MG 1 TAB IN AM 10MG 1 TAB IN THE EVENINGS
     Route: 048
     Dates: start: 20181228
  7. JAKAFI [Suspect]
     Active Substance: RUXOLITINIB
     Dosage: 10 MG + 20 MG QD
     Route: 048
     Dates: start: 20181228
  8. JAKAFI [Suspect]
     Active Substance: RUXOLITINIB
     Dosage: 10 MG + 20 MG QD
     Route: 048
     Dates: start: 20181228
  9. IMODIUM AD [Concomitant]
     Active Substance: LOPERAMIDE HYDROCHLORIDE
     Indication: PRODUCT USED FOR UNKNOWN INDICATION
     Dosage: UNK
     Route: 065
  10. NORCO [Concomitant]
     Active Substance: ACETAMINOPHEN\HYDROCODONE BITARTRATE
     Indication: PRODUCT USED FOR UNKNOWN INDICATION
     Dosage: UNK
     Route: 065
  11. PEPCID                             /00305201/ [Concomitant]
     Active Substance: ALUMINUM HYDROXIDE\MAGNESIUM CARBONATE
     Indication: PRODUCT USED FOR UNKNOWN INDICATION
     Dosage: UNK
     Route: 065
  12. FLUMIST [Concomitant]
     Active Substance: INFLUENZA A VIRUS A/CALIFORNIA/7/2009 (H1N1) LIVE(ATTENUATED) ANTIGEN\INFLUENZA A VIRUS A/PERTH/16/2009 (H3N2) LIVE(ATTENUATED) ANTIGEN\INFLUENZA B VIRUS B/BRISBANE/60/2008 LIVE(ATTENUATED) ANTIGEN
     Indication: PRODUCT USED FOR UNKNOWN INDICATION
     Dosage: UNK
     Route: 065

REACTIONS (6)
  - Product dose omission [Unknown]
  - Influenza [Recovered/Resolved]
  - Blood count abnormal [Unknown]
  - Tinea pedis [Unknown]
  - Dizziness [Unknown]
  - Pneumonia [Recovered/Resolved]

NARRATIVE: CASE EVENT DATE: 20160620
